FAERS Safety Report 18583213 (Version 1)
Quarter: 2020Q4

REPORT INFORMATION
  Report Type: Report from Study
  Country: BR (occurrence: BR)
  Receive Date: 20201206
  Receipt Date: 20201206
  Transmission Date: 20210114
  Serious: Yes (Other)
  Sender: FDA-Public Use
  Company Number: NVSC2020BR322440

PATIENT
  Age: 90 Year
  Sex: Female

DRUGS (12)
  1. SANDOSTATIN LAR DEPOT [Suspect]
     Active Substance: OCTREOTIDE ACETATE
     Indication: ACROMEGALY
     Dosage: UNK
     Route: 065
     Dates: start: 20090101
  2. ZYLORIC [Concomitant]
     Active Substance: ALLOPURINOL
     Indication: BLOOD URIC ACID INCREASED
     Dosage: 1 DF, QD (STARTED 2 YEARS AGO)
     Route: 048
  3. SANDOSTATIN LAR DEPOT [Suspect]
     Active Substance: OCTREOTIDE ACETATE
  4. ADDERA D3 [Concomitant]
     Active Substance: CHOLECALCIFEROL
     Indication: OSTEOPOROSIS
     Dosage: 1 DF (1 TABLET OF 700 EVERY 7 DAYS, STARTED 1 YEAR AGO)
     Route: 048
  5. NATRILIX - SLOW RELEASE [Concomitant]
     Active Substance: INDAPAMIDE
     Indication: POLYURIA
     Dosage: 1 DF, QD (STARTED BEFORE SANDOSTATIN)
     Route: 048
  6. SANDOSTATIN LAR DEPOT [Suspect]
     Active Substance: OCTREOTIDE ACETATE
  7. PANTOPRAZOLE [Suspect]
     Active Substance: PANTOPRAZOLE
     Indication: ABDOMINAL RIGIDITY
     Dosage: 1 DF, QD (FASTING)
     Route: 048
  8. DAFLON [Concomitant]
     Indication: VEIN DISORDER
     Dosage: UNK (1 TUBE OF 1000, QD), STARTED 3 YEARS AGO
     Route: 048
  9. CABERGOLINE. [Suspect]
     Active Substance: CABERGOLINE
     Indication: ACROMEGALY
     Dosage: 1 DF, Q5W (STARTED 2 YEARS AGO)
     Route: 048
     Dates: end: 2020
  10. EUTHYROX [Concomitant]
     Active Substance: LEVOTHYROXINE SODIUM
     Indication: THYROID MASS
     Dosage: UNK (STARTED BEFORE SANDOSTATIN)
     Route: 048
  11. HYABAK [Concomitant]
     Active Substance: HYALURONATE SODIUM
     Indication: PRODUCT USED FOR UNKNOWN INDICATION
     Dosage: UNK (1 DROP IN EACH EYE, 3 OR 4 TIMES PER DAY)
     Route: 047
  12. RAMITEC [Concomitant]
     Indication: HYPERTENSION
     Dosage: 1 DF, QD (ONCE IN THE MORNING SINCE SHE WAS 48 YEARS OLD)
     Route: 048

REACTIONS (12)
  - Pain in extremity [Not Recovered/Not Resolved]
  - Skin disorder [Not Recovered/Not Resolved]
  - Myalgia [Recovered/Resolved]
  - Product deposit [Unknown]
  - Needle issue [Unknown]
  - Product dose omission issue [Unknown]
  - Skin exfoliation [Recovering/Resolving]
  - Gait disturbance [Not Recovered/Not Resolved]
  - Arthralgia [Not Recovered/Not Resolved]
  - Injection site pain [Recovered/Resolved]
  - Embolism [Recovered/Resolved]
  - Dry skin [Not Recovered/Not Resolved]

NARRATIVE: CASE EVENT DATE: 20200827
